FAERS Safety Report 4618130-8 (Version None)
Quarter: 2005Q1

REPORT INFORMATION
  Report Type: 
  Country: None (occurrence: None)
  Receive Date: 20050323
  Receipt Date: 20050311
  Transmission Date: 20050727
  Serious: Yes (Hospitalization)
  Sender: FDA-Public Use
  Company Number: TCI2005A01346

PATIENT
  Age: 76 Year
  Sex: Female

DRUGS (17)
  1. ACTOS [Suspect]
     Indication: DIABETES MELLITUS
     Dosage: 30 MG (30 MG, 1 IN 1 D) PER ORAL
     Route: 048
     Dates: start: 20041210, end: 20041224
  2. ACTOS [Suspect]
     Indication: OBESITY
     Dosage: 30 MG (30 MG, 1 IN 1 D) PER ORAL
     Route: 048
     Dates: start: 20041210, end: 20041224
  3. BASEN TABLETS 0.3 (VOGLIBOSE) [Concomitant]
  4. HUMULIN R [Concomitant]
  5. AMARYL [Concomitant]
  6. ALDACTONE [Concomitant]
  7. PRAVASTATIN [Concomitant]
  8. LUPRAC (TORASEMIDE) [Concomitant]
  9. ALLOPURINOL [Concomitant]
  10. TENORMIN [Concomitant]
  11. MICARDIS [Concomitant]
  12. CONIEL (BENIDIPINE HYDROCHLORIDE) [Concomitant]
  13. ISOSORBIDE MONONITRATE [Concomitant]
  14. KENTAN (LOXOPROFEN SODIUM) [Concomitant]
  15. METHYCOBAL (MECOBALAMIN) [Concomitant]
  16. DETANTOL R (BUNAZOSIN HYDROCHLORIDE) [Concomitant]
  17. ADALAT [Concomitant]

REACTIONS (5)
  - ACUTE RESPIRATORY FAILURE [None]
  - CONDITION AGGRAVATED [None]
  - GENERALISED OEDEMA [None]
  - HYPERTENSION [None]
  - PULMONARY CONGESTION [None]
